FAERS Safety Report 13503035 (Version 3)
Quarter: 2017Q3

REPORT INFORMATION
  Report Type: Spontaneous
  Country: DE (occurrence: DE)
  Receive Date: 20170502
  Receipt Date: 20170718
  Transmission Date: 20171127
  Serious: Yes (Other)
  Sender: FDA-Public Use
  Company Number: DE-TAIHO ONCOLOGY INC-JPTT170524

PATIENT
  Age: 87 Year
  Sex: Male

DRUGS (3)
  1. LONSURF [Suspect]
     Active Substance: TIPIRACIL HYDROCHLORIDE\TRIFLURIDINE
     Dosage: 65 MG (UNK MG/M2)  BID, ORALLY ON DAYS 1-5 AND 8-12 OF EACH 28-DAY CYCLE
     Route: 048
  2. LONSURF [Suspect]
     Active Substance: TIPIRACIL HYDROCHLORIDE\TRIFLURIDINE
     Indication: COLON CANCER
     Dosage: 65 MG (UNK MG/M2)  BID, ORALLY ON DAYS 1-5 AND 8-12 OF EACH 28-DAY CYCLE
     Route: 048
     Dates: start: 20161220
  3. LONSURF [Suspect]
     Active Substance: TIPIRACIL HYDROCHLORIDE\TRIFLURIDINE
     Dosage: 65 MG (UNK MG/M2)  BID, ORALLY ON DAYS 1-5 AND 8-12 OF EACH 28-DAY CYCLE
     Route: 048
     Dates: start: 20170214

REACTIONS (4)
  - Atrial fibrillation [Not Recovered/Not Resolved]
  - Asthenia [Unknown]
  - Nausea [Unknown]
  - Hypotension [Unknown]

NARRATIVE: CASE EVENT DATE: 201704
